FAERS Safety Report 8004514-7 (Version None)
Quarter: 2011Q4

REPORT INFORMATION
  Report Type: 
  Country: None (occurrence: None)
  Receive Date: 20111221
  Receipt Date: 20111221
  Transmission Date: 20120403
  Serious: Yes (Hospitalization)
  Sender: FDA-Public Use
  Company Number: None

PATIENT
  Age: 89 Year
  Sex: Female
  Weight: 68.1 kg

DRUGS (7)
  1. LISINOPRIL [Concomitant]
  2. LEVOTHYROXINE SODIUM [Concomitant]
  3. SIMVASTATIN [Concomitant]
  4. ASPIRIN [Suspect]
  5. CALCIUM ACETATE [Concomitant]
  6. POTASSIUM CHLORIDE [Concomitant]
  7. PLAVIX [Suspect]

REACTIONS (5)
  - UPPER GASTROINTESTINAL HAEMORRHAGE [None]
  - HAEMOGLOBIN DECREASED [None]
  - ASTHENIA [None]
  - DYSPNOEA [None]
  - GASTRITIS EROSIVE [None]
